FAERS Safety Report 9531433 (Version 1)
Quarter: 2013Q3

REPORT INFORMATION
  Report Type: Spontaneous
  Country: US (occurrence: None)
  Receive Date: 20130916
  Receipt Date: 20130916
  Transmission Date: 20140515
  Serious: Yes (Other)
  Sender: FDA-Public Use
  Company Number: None

PATIENT
  Age: 66 Year
  Sex: Female

DRUGS (1)
  1. ONGLYZA [Suspect]
     Indication: DIABETES MELLITUS
     Dosage: 1 PILL, ONCE DAILY, TAKEN BY MOUTH
     Route: 048
     Dates: start: 20130813, end: 20130905

REACTIONS (3)
  - Nausea [None]
  - Oedema peripheral [None]
  - Oedema peripheral [None]
